FAERS Safety Report 8386486-9 (Version None)
Quarter: 2012Q2

REPORT INFORMATION
  Report Type: 
  Country: None (occurrence: None)
  Receive Date: 20120525
  Receipt Date: 20120521
  Transmission Date: 20120825
  Serious: No
  Sender: FDA-Public Use
  Company Number: US-COVIDIEN/TYCO HEALTHCARE/MALLINCKRODT-T201201898

PATIENT
  Sex: Female
  Weight: 75.828 kg

DRUGS (7)
  1. RED YEAST RICE [Concomitant]
  2. TOFRANIL [Suspect]
     Indication: ANXIETY
     Dosage: QHS
     Route: 048
     Dates: start: 19850101
  3. TOFRANIL [Suspect]
     Indication: PANIC ATTACK
  4. ASPIRIN [Concomitant]
     Indication: PROPHYLAXIS
     Dosage: 81 MG, QD
  5. FISH OIL [Concomitant]
     Indication: SUPPLEMENTATION THERAPY
     Dosage: UNK
  6. STOOL SOFTENER [Concomitant]
     Indication: CONSTIPATION
     Dosage: UNK
  7. CLONAZEPAM [Concomitant]
     Indication: RESTLESS LEGS SYNDROME
     Dosage: UNK

REACTIONS (2)
  - CONTUSION [None]
  - WEIGHT INCREASED [None]
